FAERS Safety Report 6228384-2 (Version None)
Quarter: 2009Q2

REPORT INFORMATION
  Report Type: 
  Country: None (occurrence: None)
  Receive Date: 20090612
  Receipt Date: 20090604
  Transmission Date: 20091009
  Serious: Yes (Hospitalization)
  Sender: FDA-Public Use
  Company Number: US-ELI_LILLY_AND_COMPANY-US200904007347

PATIENT
  Sex: Male
  Weight: 93.878 kg

DRUGS (14)
  1. BYETTA [Suspect]
     Dosage: 101 UG, UNKNOWN
     Route: 065
     Dates: start: 20060501, end: 20080101
  2. BYETTA [Suspect]
     Dosage: 10 UG, 2/D
     Route: 058
     Dates: start: 20080101, end: 20080401
  3. BYETTA [Suspect]
     Dosage: 5 UG, 2/D
     Route: 058
     Dates: start: 20080401, end: 20090401
  4. GLIMEPIRIDE [Concomitant]
     Dosage: 0.5 MG, DAILY (1/D)
     Route: 048
  5. LOPRESSOR [Concomitant]
     Dosage: 25 MG, DAILY (1/D)
     Route: 048
  6. TRICOR [Concomitant]
     Dosage: 145 MG, DAILY (1/D)
     Route: 048
  7. LEVOXYL [Concomitant]
     Dosage: 50 MG, DAILY (1/D)
     Route: 048
  8. RAMIPRIL [Concomitant]
     Dosage: 5 MG, DAILY (1/D)
     Route: 048
  9. PLAVIX [Concomitant]
     Dosage: 75 MG, DAILY (1/D)
     Route: 048
  10. ACTOS [Concomitant]
     Dosage: 45 MG, DAILY (1/D)
     Route: 048
  11. LOVAZA [Concomitant]
     Dosage: 2 MG, 2/D
     Route: 048
  12. VYTORIN [Concomitant]
     Dosage: UNK, DAILY (1/D)
     Route: 048
  13. PREVACID [Concomitant]
     Dosage: 30 MG, DAILY (1/D)
     Route: 048
  14. ASPIRIN [Concomitant]
     Dosage: 81 MG, DAILY (1/D)
     Route: 048

REACTIONS (3)
  - PANCREATITIS ACUTE [None]
  - RENAL FAILURE [None]
  - WEIGHT DECREASED [None]
